FAERS Safety Report 22200777 (Version 5)
Quarter: 2024Q2

REPORT INFORMATION
  Report Type: Report from Study
  Country: CA (occurrence: CA)
  Receive Date: 20230412
  Receipt Date: 20240402
  Transmission Date: 20240716
  Serious: Yes (Hospitalization, Other)
  Sender: FDA-Public Use
  Company Number: CA-002147023-NVSC2021CA178726

PATIENT
  Age: 72 Year
  Sex: Female
  Weight: 46.3 kg

DRUGS (17)
  1. COSENTYX [Suspect]
     Active Substance: SECUKINUMAB
     Indication: Psoriasis
     Dosage: 300 MG
     Route: 058
     Dates: start: 20200925, end: 202010
  2. COSENTYX [Suspect]
     Active Substance: SECUKINUMAB
     Dosage: 300 MG
     Route: 058
     Dates: start: 202010, end: 20231017
  3. COSENTYX [Suspect]
     Active Substance: SECUKINUMAB
     Dosage: 300 MG, Q4W
     Route: 058
     Dates: start: 20231017
  4. CYCLOCORT [Concomitant]
     Active Substance: AMCINONIDE
     Indication: Product used for unknown indication
     Dosage: UNK
     Route: 065
     Dates: start: 20210519, end: 20220130
  5. LYDERM [Concomitant]
     Indication: Product used for unknown indication
     Dosage: UNK
     Route: 065
     Dates: start: 20220130, end: 202207
  6. TYLENOL [Concomitant]
     Active Substance: ACETAMINOPHEN
     Indication: Product used for unknown indication
     Dosage: 2 DOSAGE FORM, TID (2 TABLETS (1000 MG TOTAL) BY MOUTH 3 TIMES A DAY))
     Route: 048
  7. AMOXICILLIN\CLAVULANATE POTASSIUM [Concomitant]
     Active Substance: AMOXICILLIN\CLAVULANATE POTASSIUM
     Indication: Product used for unknown indication
     Dosage: 1 DOSAGE FORM, BID (X 10 DAYS)
     Route: 065
     Dates: end: 20231019
  8. BISOPROLOL FUMARATE [Concomitant]
     Active Substance: BISOPROLOL FUMARATE
     Indication: Product used for unknown indication
     Dosage: UNK (TAKE 0.5 TABLETS (2.5 MG TOTAL) BY MOUTH DAILY WITH BREAKFAST. (PATIENT TAKING DIFFERENTLY: TAK
     Route: 048
  9. PROLIA [Concomitant]
     Active Substance: DENOSUMAB
     Indication: Product used for unknown indication
     Dosage: 60 MG (INJECT 60 MG UNDER THE SKIN EVERY SIX MONTHS)
     Route: 058
  10. DILAUDID [Concomitant]
     Active Substance: HYDROMORPHONE HYDROCHLORIDE
     Indication: Product used for unknown indication
     Dosage: 1 MG, Q4H (BY MOUTH AS NEED (FOR PAIN. PLEASE TAKE SENOKOT WITH THIS)
     Route: 065
  11. MAGNESIUM OXIDE [Concomitant]
     Active Substance: MAGNESIUM OXIDE
     Indication: Product used for unknown indication
     Dosage: 2 DOSAGE FORM, QD (125 MG OR 126 MG ELEMENTAL MAGNESIUM) HALF TAB, TAKE 2 HALF TABLETS (420 MG TOTAL
     Route: 048
  12. POTASSIUM CHLORIDE [Concomitant]
     Active Substance: POTASSIUM CHLORIDE
     Indication: Product used for unknown indication
     Dosage: 2 DOSAGE FORM, BID
     Route: 048
  13. LYRICA [Concomitant]
     Active Substance: PREGABALIN
     Indication: Product used for unknown indication
     Dosage: 1 DOSAGE FORM, BID
     Route: 048
  14. ENTRESTO [Concomitant]
     Active Substance: SACUBITRIL\VALSARTAN
     Indication: Product used for unknown indication
     Dosage: 1 DOSAGE FORM, BID
     Route: 048
  15. SENOKOT [Concomitant]
     Active Substance: SENNOSIDES
     Indication: Product used for unknown indication
     Dosage: 2 DOSAGE FORM, QD (TAEK 2 TABLETS (17.2 MG TOTAL) BY MOUTH NIGHTLY. (PATIENT TAKING DIFFERENTLY: TAE
     Route: 048
  16. ALDACTONE [Concomitant]
     Active Substance: SPIRONOLACTONE
     Indication: Product used for unknown indication
     Dosage: 0.5 DOSAGE FORM, QD (TAKE 0.5 TABLETS (12.5 MG TOTAL) BY MOUTH DAILY)
     Route: 048
  17. DESONIDE [Concomitant]
     Active Substance: DESONIDE
     Indication: Product used for unknown indication
     Dosage: UNK
     Route: 065
     Dates: start: 20220808

REACTIONS (13)
  - Pyelonephritis [Recovered/Resolved with Sequelae]
  - Osteomyelitis [Recovered/Resolved with Sequelae]
  - Cardiac failure congestive [Recovered/Resolved with Sequelae]
  - Spinal cord abscess [Unknown]
  - Psoriatic arthropathy [Recovered/Resolved]
  - Cellulitis [Recovered/Resolved]
  - Stress cardiomyopathy [Not Recovered/Not Resolved]
  - Onychomycosis [Recovered/Resolved]
  - Herpes zoster [Recovered/Resolved with Sequelae]
  - Actinic keratosis [Recovered/Resolved]
  - Vulvovaginitis [Recovering/Resolving]
  - Actinic keratosis [Recovered/Resolved]
  - Injection site reaction [Recovered/Resolved]

NARRATIVE: CASE EVENT DATE: 20201123
